FAERS Safety Report 6028278-1 (Version None)
Quarter: 2009Q1

REPORT INFORMATION
  Report Type: 
  Country: None (occurrence: None)
  Receive Date: 20090102
  Receipt Date: 20081218
  Transmission Date: 20090719
  Serious: Yes (Disabling, Other)
  Sender: FDA-Public Use
  Company Number: 2004-05-0190

PATIENT
  Age: 52 Year
  Sex: Female
  Weight: 60 kg

DRUGS (7)
  1. INTRON A [Suspect]
     Indication: SMALL INTESTINE CARCINOMA
     Dosage: 3 MIU; TIW; SC, 3 MIU; TIW; SC, 3 MIU; TIW; SC
     Route: 058
     Dates: start: 20021202, end: 20030401
  2. INTRON A [Suspect]
     Indication: SMALL INTESTINE CARCINOMA
     Dosage: 3 MIU; TIW; SC, 3 MIU; TIW; SC, 3 MIU; TIW; SC
     Route: 058
     Dates: start: 20021202, end: 20040319
  3. INTRON A [Suspect]
     Indication: SMALL INTESTINE CARCINOMA
     Dosage: 3 MIU; TIW; SC, 3 MIU; TIW; SC, 3 MIU; TIW; SC
     Route: 058
     Dates: start: 20030617, end: 20040319
  4. PEG-INTRON (PEGINTERFERON ALFA-2B) (PEG-INTERFERON ALFA-2B) CARCINOID [Suspect]
     Indication: CARCINOID TUMOUR
     Dosage: 80 MCG; QW; SC, 80 MCG
     Dates: start: 20030401, end: 20030617
  5. PEG-INTRON (PEGINTERFERON ALFA-2B) (PEG-INTERFERON ALFA-2B) CARCINOID [Suspect]
     Indication: SMALL INTESTINE CARCINOMA
     Dosage: 80 MCG; QW; SC, 80 MCG
     Dates: start: 20030401, end: 20030617
  6. PEG-INTRON (PEGINTERFERON ALFA-2B) (PEG-INTERFERON ALFA-2B) CARCINOID [Suspect]
     Indication: CARCINOID TUMOUR
     Dosage: 80 MCG; QW; SC, 80 MCG
     Dates: start: 20030319, end: 20040319
  7. PEG-INTRON (PEGINTERFERON ALFA-2B) (PEG-INTERFERON ALFA-2B) CARCINOID [Suspect]
     Indication: SMALL INTESTINE CARCINOMA
     Dosage: 80 MCG; QW; SC, 80 MCG
     Dates: start: 20030319, end: 20040319

REACTIONS (2)
  - DEAFNESS UNILATERAL [None]
  - ILEUS [None]
